FAERS Safety Report 7902705-4 (Version None)
Quarter: 2011Q4

REPORT INFORMATION
  Report Type: 
  Country: None (occurrence: None)
  Receive Date: 20111108
  Receipt Date: 20111026
  Transmission Date: 20120403
  Serious: Yes (Hospitalization, Other)
  Sender: FDA-Public Use
  Company Number: JP-ROCHE-772379

PATIENT
  Sex: Female
  Weight: 38.3 kg

DRUGS (15)
  1. RHEUMATREX [Concomitant]
     Route: 048
     Dates: start: 20050401, end: 20100701
  2. DICLOFENAC SODIUM [Concomitant]
     Route: 048
  3. FOLIC ACID [Concomitant]
     Route: 048
  4. SODIUM BICARBONATE [Concomitant]
     Route: 049
  5. ACTEMRA [Suspect]
     Indication: RHEUMATOID ARTHRITIS
     Dosage: DOSAGE IS UNCERTAIN
     Route: 041
     Dates: start: 20101202, end: 20110324
  6. SELBEX [Concomitant]
     Route: 048
  7. PROGRAF [Concomitant]
     Route: 048
     Dates: start: 20080701
  8. BAKTAR [Concomitant]
  9. UREPEARL [Concomitant]
     Route: 061
  10. FERROUS SULFATE TAB [Concomitant]
  11. LANSOPRAZOLE [Concomitant]
     Route: 048
  12. PREDNISOLONE [Concomitant]
     Dosage: 28 LIVER AFTER BREAKFAST
     Route: 048
  13. RHEUMATREX [Concomitant]
     Dosage: 6 MG FRIDAAY AND 4 MG SATURDAY
     Route: 048
     Dates: start: 20100701
  14. RESTAMIN [Concomitant]
     Route: 061
  15. XYLOCAINE [Concomitant]
     Route: 049

REACTIONS (2)
  - RHEUMATOID VASCULITIS [None]
  - SKIN ULCER [None]
